FAERS Safety Report 10226924 (Version 1)
Quarter: 2014Q2

REPORT INFORMATION
  Report Type: Spontaneous
  Country: US (occurrence: US)
  Receive Date: 20140610
  Receipt Date: 20140610
  Transmission Date: 20141212
  Serious: No
  Sender: FDA-Public Use
  Company Number: US-009507513-1406USA000699

PATIENT
  Sex: Male

DRUGS (9)
  1. ZETIA [Suspect]
     Dosage: UNK
     Dates: end: 201312
  2. HUMIRA [Suspect]
     Indication: COLITIS ULCERATIVE
     Dosage: 40 MG, 1 IN 2 WEEK,SOLUTION FOR INJECTION IN PREFILLED
     Route: 065
     Dates: start: 20131014
  3. PREDNISONE [Concomitant]
     Dosage: 10 MG, QD
  4. PREDNISONE [Concomitant]
     Dosage: 40 MG, 1 IN 1 D
  5. PREDNISONE [Concomitant]
     Dosage: 20 MG, QD
  6. PREDNISONE [Concomitant]
     Dosage: 10 MG, QW
  7. TIMOLOL MALEATE [Concomitant]
     Dosage: 20 MG, 1 IN 1 D
  8. ATENOLOL [Concomitant]
     Dosage: 50 MG, 1 IN 1 D
  9. LOVASTATIN [Concomitant]
     Dosage: 40 MG, 1 IN 1 D

REACTIONS (1)
  - Colitis ulcerative [Recovering/Resolving]
